FAERS Safety Report 13037481 (Version 1)
Quarter: 2016Q4

REPORT INFORMATION
  Report Type: Report from Study
  Country: US (occurrence: US)
  Receive Date: 20161216
  Receipt Date: 20161216
  Transmission Date: 20170207
  Serious: Yes (Death)
  Sender: FDA-Public Use
  Company Number: US-ASTRAZENECA-2016SF31301

PATIENT
  Age: 28541 Day
  Sex: Male

DRUGS (6)
  1. ASPIRIN. [Concomitant]
     Active Substance: ASPIRIN
  2. BUMETANIDE. [Concomitant]
     Active Substance: BUMETANIDE
  3. TOPROL XL [Suspect]
     Active Substance: METOPROLOL SUCCINATE
     Dosage: 100.0MG UNKNOWN
     Route: 048
     Dates: start: 20160921
  4. PRAVASTATIN. [Concomitant]
     Active Substance: PRAVASTATIN
  5. PARICALCITOL. [Concomitant]
     Active Substance: PARICALCITOL
  6. TAMSULOSIN [Concomitant]
     Active Substance: TAMSULOSIN

REACTIONS (1)
  - Death [Fatal]

NARRATIVE: CASE EVENT DATE: 20161122
